FAERS Safety Report 6611881-5 (Version None)
Quarter: 2010Q1

REPORT INFORMATION
  Report Type: 
  Country: None (occurrence: None)
  Receive Date: 20100303
  Receipt Date: 20100222
  Transmission Date: 20100710
  Serious: Yes (Hospitalization)
  Sender: FDA-Public Use
  Company Number: DE-ABBOTT-09P-062-0584036-00

PATIENT
  Sex: Female
  Weight: 88 kg

DRUGS (6)
  1. HUMIRA [Suspect]
     Indication: PSORIASIS
     Route: 058
     Dates: start: 20090309
  2. HUMIRA [Suspect]
     Dates: end: 20090708
  3. HYGROTON [Concomitant]
     Indication: HYPERTENSION
     Dosage: 50 MG DAILY
     Route: 048
  4. ALENDRONIC ACID [Concomitant]
     Indication: OSTEOPOROSIS
     Route: 048
  5. EUTHYROX [Concomitant]
     Indication: GOITRE
     Route: 048
  6. METOHEXAL [Concomitant]
     Indication: HYPERTENSION
     Dosage: 47.5 MG DAILY
     Route: 048

REACTIONS (1)
  - THYROIDECTOMY [None]
